FAERS Safety Report 9934916 (Version 6)
Quarter: 2014Q3

REPORT INFORMATION
  Report Type: Report from Study
  Country: US (occurrence: US)
  Receive Date: 20140228
  Receipt Date: 20140926
  Transmission Date: 20150326
  Serious: Yes (Hospitalization, Other)
  Sender: FDA-Public Use
  Company Number: US-SA-2014SA005360

PATIENT
  Sex: Female

DRUGS (7)
  1. ASPIRIN. [Concomitant]
     Active Substance: ASPIRIN
  2. AUBAGIO [Suspect]
     Active Substance: TERIFLUNOMIDE
     Indication: MULTIPLE SCLEROSIS
     Route: 048
     Dates: start: 20131116
  3. ERYTHROMYCIN. [Concomitant]
     Active Substance: ERYTHROMYCIN
  4. IBUPROFEN. [Concomitant]
     Active Substance: IBUPROFEN
  5. CODEINE [Concomitant]
     Active Substance: CODEINE
  6. TRAMADOL [Concomitant]
     Active Substance: TRAMADOL
  7. PENICILLIN NOS [Concomitant]
     Active Substance: PENICILLIN

REACTIONS (23)
  - Gait disturbance [Unknown]
  - Multiple sclerosis relapse [Unknown]
  - Palpitations [Unknown]
  - Diarrhoea [Unknown]
  - Back pain [Unknown]
  - Dyspnoea [Unknown]
  - Pruritus generalised [Unknown]
  - Decreased appetite [Unknown]
  - Depression [Unknown]
  - Muscular weakness [Unknown]
  - Hypotension [Unknown]
  - Pain in extremity [Unknown]
  - Multiple sclerosis relapse [Not Recovered/Not Resolved]
  - Hypersomnia [Unknown]
  - Thyroid neoplasm [Unknown]
  - Dizziness [Unknown]
  - Nervous system disorder [Unknown]
  - Alopecia [Recovering/Resolving]
  - Weight decreased [Unknown]
  - Blood potassium decreased [Unknown]
  - Anxiety [Unknown]
  - Blood magnesium decreased [Unknown]
  - Fatigue [Not Recovered/Not Resolved]
